FAERS Safety Report 15986175 (Version 1)
Quarter: 2019Q1

REPORT INFORMATION
  Report Type: Spontaneous
  Country: US (occurrence: US)
  Receive Date: 20190220
  Receipt Date: 20190220
  Transmission Date: 20190418
  Serious: No
  Sender: FDA-Public Use
  Company Number: US-BAUSCH-BL-2019-003552

PATIENT
  Sex: Female
  Weight: 99.88 kg

DRUGS (2)
  1. RETIN-A [Suspect]
     Active Substance: TRETINOIN
     Indication: PRODUCT USE IN UNAPPROVED INDICATION
  2. RETIN-A [Suspect]
     Active Substance: TRETINOIN
     Indication: ACTINIC KERATOSIS
     Route: 061
     Dates: end: 2018

REACTIONS (5)
  - Weight increased [Unknown]
  - Gait inability [Unknown]
  - Asthenia [Unknown]
  - Product use in unapproved indication [Recovered/Resolved]
  - Body height decreased [Unknown]
